FAERS Safety Report 14184846 (Version 3)
Quarter: 2021Q1

REPORT INFORMATION
  Report Type: Report from Study
  Country: US (occurrence: US)
  Receive Date: 20171113
  Receipt Date: 20210121
  Transmission Date: 20210419
  Serious: Yes (Death, Other)
  Sender: FDA-Public Use
  Company Number: US-BRISTOL-MYERS SQUIBB COMPANY-BMS-2017-098682

PATIENT
  Age: 52 Year
  Sex: Male
  Weight: 87.1 kg

DRUGS (2)
  1. NIVOLUMAB [Suspect]
     Active Substance: NIVOLUMAB
     Indication: MALIGNANT MELANOMA
     Dosage: 240 MG, Q2WK
     Route: 042
     Dates: start: 20170711
  2. RELATLIMAB [Suspect]
     Active Substance: RELATLIMAB
     Indication: MALIGNANT MELANOMA
     Dosage: 80 MG, Q2WK
     Route: 042
     Dates: start: 20170711

REACTIONS (2)
  - Malignant neoplasm progression [Fatal]
  - Acute myeloid leukaemia [Not Recovered/Not Resolved]

NARRATIVE: CASE EVENT DATE: 20171031
